FAERS Safety Report 11003005 (Version 1)
Quarter: 2015Q2

REPORT INFORMATION
  Report Type: Spontaneous
  Country: GB (occurrence: GB)
  Receive Date: 20150408
  Receipt Date: 20150408
  Transmission Date: 20150821
  Serious: Yes (Other)
  Sender: FDA-Public Use
  Company Number: GB-MYLANLABS-2015M1011463

PATIENT

DRUGS (5)
  1. EFAVIRENZ [Suspect]
     Active Substance: EFAVIRENZ
     Indication: OFF LABEL USE
  2. LAMIVUDINE. [Suspect]
     Active Substance: LAMIVUDINE
     Indication: GENITAL HERPES
     Route: 065
  3. LAMIVUDINE. [Suspect]
     Active Substance: LAMIVUDINE
     Indication: OFF LABEL USE
  4. EFAVIRENZ [Suspect]
     Active Substance: EFAVIRENZ
     Indication: GENITAL HERPES
     Route: 065
  5. TENOFOVIR [Suspect]
     Active Substance: TENOFOVIR
     Indication: GENITAL HERPES
     Route: 065

REACTIONS (3)
  - Castleman^s disease [Recovering/Resolving]
  - Idiopathic angioedema [Recovered/Resolved]
  - Immune reconstitution inflammatory syndrome [Unknown]
